FAERS Safety Report 18326122 (Version 1)
Quarter: 2020Q3

REPORT INFORMATION
  Report Type: Spontaneous
  Country: CA (occurrence: CA)
  Receive Date: 20200929
  Receipt Date: 20200929
  Transmission Date: 20201103
  Serious: Yes (Hospitalization, Other)
  Sender: FDA-Public Use
  Company Number: CA-JNJFOC-20200936004

PATIENT
  Age: 45 Year
  Sex: Male
  Weight: 60 kg

DRUGS (7)
  1. METRONIDAZOLE BENZOATE [Concomitant]
     Active Substance: METRONIDAZOLE BENZOATE
     Route: 048
  2. PENTASA [Concomitant]
     Active Substance: MESALAMINE
     Route: 048
  3. METRONIDAZOLE. [Concomitant]
     Active Substance: METRONIDAZOLE
     Indication: CROHN^S DISEASE
     Route: 048
  4. SALOFALK                           /00747601/ [Concomitant]
     Active Substance: MESALAMINE
     Route: 054
  5. MERCAPTOPURINE. [Concomitant]
     Active Substance: MERCAPTOPURINE
     Indication: CROHN^S DISEASE
     Route: 048
  6. INFLIXIMAB, RECOMBINANT [Suspect]
     Active Substance: INFLIXIMAB
     Indication: CROHN^S DISEASE
     Route: 042
  7. CIPROFLOXACIN. [Concomitant]
     Active Substance: CIPROFLOXACIN
     Indication: CROHN^S DISEASE
     Route: 048

REACTIONS (9)
  - Off label use [Not Recovered/Not Resolved]
  - Malnutrition [Not Recovered/Not Resolved]
  - Bloody discharge [Not Recovered/Not Resolved]
  - Pain [Not Recovered/Not Resolved]
  - Fistula [Not Recovered/Not Resolved]
  - Wound [Not Recovered/Not Resolved]
  - Product dose omission issue [Not Recovered/Not Resolved]
  - Abscess [Not Recovered/Not Resolved]
  - Peritonitis [Not Recovered/Not Resolved]
